FAERS Safety Report 5292245-6 (Version None)
Quarter: 2007Q2

REPORT INFORMATION
  Report Type: 
  Country: None (occurrence: None)
  Receive Date: 20070410
  Receipt Date: 20070329
  Transmission Date: 20071010
  Serious: Yes (Other)
  Sender: FDA-Public Use
  Company Number: US-SANOFI-SYNTHELABO-A03200702436

PATIENT
  Sex: Female

DRUGS (9)
  1. PLAVIX [Suspect]
     Indication: STENT PLACEMENT
     Dosage: UNK
     Route: 048
     Dates: start: 20060901
  2. ANTIBIOTICS [Concomitant]
     Dosage: UNK
     Route: 065
  3. TRICOR [Concomitant]
     Dosage: UNK
     Route: 048
  4. LIPITOR [Concomitant]
     Dosage: UNK
     Route: 048
  5. ASPIRIN [Concomitant]
     Route: 048
  6. ADVAIR DISKUS 100/50 [Concomitant]
     Dosage: UNK
     Route: 055
  7. ALTACE [Concomitant]
     Dosage: UNK
     Route: 048
  8. LOPRESSOR [Concomitant]
     Dosage: UNK
     Route: 048
  9. SYNTHROID [Concomitant]
     Dosage: UNK
     Route: 048

REACTIONS (3)
  - ARTHRALGIA [None]
  - NEUROPATHY [None]
  - VASCULAR PSEUDOANEURYSM [None]
